FAERS Safety Report 9651849 (Version 1)
Quarter: 2013Q4

REPORT INFORMATION
  Report Type: Spontaneous
  Country: CZ (occurrence: CZ)
  Receive Date: 20131029
  Receipt Date: 20131029
  Transmission Date: 20140711
  Serious: Yes (Hospitalization)
  Sender: FDA-Public Use
  Company Number: CZ-SA-2013SA109371

PATIENT
  Age: 58 Year
  Sex: Male

DRUGS (8)
  1. OXALIPLATIN [Suspect]
     Indication: RECTOSIGMOID CANCER METASTATIC
     Dosage: INFUSION
     Route: 065
     Dates: start: 201305, end: 201307
  2. OXALIPLATIN [Suspect]
     Indication: METASTASES TO LIVER
     Dosage: INFUSION
     Route: 065
     Dates: start: 201305, end: 201307
  3. FLUOROURACIL [Suspect]
     Indication: RECTOSIGMOID CANCER METASTATIC
     Dosage: INFUSION
     Route: 065
     Dates: start: 201305, end: 201307
  4. FLUOROURACIL [Suspect]
     Indication: METASTASES TO LIVER
     Dosage: INFUSION
     Route: 065
     Dates: start: 201305, end: 201307
  5. CETUXIMAB [Suspect]
     Indication: RECTOSIGMOID CANCER METASTATIC
     Dosage: INFUSION
     Route: 065
     Dates: start: 201305, end: 201307
  6. CETUXIMAB [Suspect]
     Indication: METASTASES TO LIVER
     Dosage: INFUSION
     Route: 065
     Dates: start: 201305, end: 201307
  7. LEUCOVORIN [Suspect]
     Indication: RECTOSIGMOID CANCER METASTATIC
     Dosage: INFUSION
     Route: 065
     Dates: start: 201305, end: 201307
  8. LEUCOVORIN [Suspect]
     Indication: METASTASES TO LIVER
     Dosage: INFUSION
     Route: 065
     Dates: start: 201305, end: 201307

REACTIONS (3)
  - Mineral metabolism disorder [Recovered/Resolved]
  - Diarrhoea [Recovered/Resolved]
  - Stomatitis [Recovered/Resolved]
